FAERS Safety Report 17019677 (Version 1)
Quarter: 2019Q4

REPORT INFORMATION
  Report Type: Report from Study
  Country: US (occurrence: US)
  Receive Date: 20191112
  Receipt Date: 20191112
  Transmission Date: 20200122
  Serious: Yes (Other)
  Sender: FDA-Public Use
  Company Number: US-BTG-201900175

PATIENT
  Age: 63 Year
  Sex: Female

DRUGS (7)
  1. CROFAB [Suspect]
     Active Substance: CROTALIDAE POLYVALENT IMMUNE FAB (OVINE)
     Indication: SNAKE BITE
     Dosage: ADDITIONAL TWO (2) VIALS FOR INITIAL CONTROL.
     Route: 065
  2. OPIOD [Suspect]
     Active Substance: UNSPECIFIED INGREDIENT
     Indication: PRODUCT USED FOR UNKNOWN INDICATION
     Route: 065
  3. CROFAB [Suspect]
     Active Substance: CROTALIDAE POLYVALENT IMMUNE FAB (OVINE)
     Indication: SNAKE BITE
     Dosage: SIX (6) VIALS FOR INITIAL CONTROL.
     Route: 065
  4. CROFAB [Suspect]
     Active Substance: CROTALIDAE POLYVALENT IMMUNE FAB (OVINE)
     Indication: SNAKE BITE
     Dosage: ADDITIONAL TWO (2) VIALS FOR INITIAL CONTROL.
     Route: 065
  5. CROFAB [Suspect]
     Active Substance: CROTALIDAE POLYVALENT IMMUNE FAB (OVINE)
     Indication: SNAKE BITE
     Dosage: ADDITIONAL TWO (2) VIALS FOR INITIAL CONTROL.
     Route: 065
  6. CROFAB [Suspect]
     Active Substance: CROTALIDAE POLYVALENT IMMUNE FAB (OVINE)
     Indication: SNAKE BITE
     Dosage: ADDITIONAL TWO (2) VIALS FOR INITIAL CONTROL.
     Route: 065
  7. CROFAB [Suspect]
     Active Substance: CROTALIDAE POLYVALENT IMMUNE FAB (OVINE)
     Indication: SNAKE BITE
     Dosage: ADDITIONAL FOUR (4) VIALS FOR INITIAL CONTROL.
     Route: 065

REACTIONS (6)
  - Thrombocytopenia [Recovered/Resolved]
  - Pain [Recovered/Resolved]
  - Prothrombin time prolonged [Recovered/Resolved]
  - Swelling [Recovered/Resolved]
  - Platelet count decreased [Recovered/Resolved]
  - Blood fibrinogen decreased [Recovered/Resolved]
